FAERS Safety Report 8427852-2 (Version None)
Quarter: 2012Q2

REPORT INFORMATION
  Report Type: 
  Country: None (occurrence: None)
  Receive Date: 20120611
  Receipt Date: 20120601
  Transmission Date: 20120825
  Serious: Yes (Hospitalization)
  Sender: FDA-Public Use
  Company Number: US-JNJFOC-20120519343

PATIENT
  Sex: Female
  Weight: 63.05 kg

DRUGS (6)
  1. OMEPRAZOLE [Concomitant]
     Indication: ANTACID THERAPY
     Route: 048
  2. PANCREAZE [Suspect]
     Dosage: 16800 UNITS/CAPSULE
     Route: 048
     Dates: start: 20110101, end: 20120101
  3. BETA-BLOCKER (NAME UNSPECIFIED) [Suspect]
     Indication: PRODUCT USED FOR UNKNOWN INDICATION
     Route: 065
  4. ALL OTHER THERAPEUTIC PRODUCTS [Concomitant]
     Indication: MEDICAL DIET
     Route: 048
  5. PANCREAZE [Suspect]
     Indication: DYSPEPSIA
     Dosage: 16800 USP UNITS/ CAPSULE
     Route: 048
     Dates: start: 20110101
  6. SIMVASTATIN [Concomitant]
     Indication: BLOOD CHOLESTEROL
     Route: 065

REACTIONS (7)
  - DIARRHOEA [None]
  - HEART RATE DECREASED [None]
  - PAIN [None]
  - EXPIRED DRUG ADMINISTERED [None]
  - FLATULENCE [None]
  - MALAISE [None]
  - ABDOMINAL PAIN UPPER [None]
